FAERS Safety Report 4689103-4 (Version None)
Quarter: 2005Q2

REPORT INFORMATION
  Report Type: 
  Country: None (occurrence: None)
  Receive Date: 20050608
  Receipt Date: 20050316
  Transmission Date: 20051028
  Serious: No
  Sender: FDA-Public Use
  Company Number: 2005-BP-04413BP

PATIENT
  Sex: Male

DRUGS (9)
  1. SPIRIVA [Suspect]
     Indication: BRONCHITIS
     Dosage: 18 MCG (18 MCG, QD), IH
     Route: 055
     Dates: start: 20050301, end: 20050316
  2. SPIRIVA [Suspect]
     Indication: PROPHYLAXIS
     Dosage: 18 MCG (18 MCG, QD), IH
     Route: 055
     Dates: start: 20050301, end: 20050316
  3. ADVAIR DISKUS 100/50 [Concomitant]
  4. LOTREL [Concomitant]
  5. LEVOXIN [Concomitant]
  6. LEVOXYL [Concomitant]
  7. SINGULAIR (MONTELUKAST) [Concomitant]
  8. VYTORIN [Concomitant]
  9. ACETYLSALICYLIC ACID SRT [Concomitant]

REACTIONS (1)
  - DIZZINESS [None]
